FAERS Safety Report 6780795-2 (Version None)
Quarter: 2010Q2

REPORT INFORMATION
  Report Type: 
  Country: None (occurrence: None)
  Receive Date: 20100621
  Receipt Date: 20100609
  Transmission Date: 20101027
  Serious: Yes (Other)
  Sender: FDA-Public Use
  Company Number: US-BAYER-200915403NA

PATIENT
  Age: 34 Year
  Sex: Female
  Weight: 68 kg

DRUGS (2)
  1. MIRENA [Suspect]
     Indication: CONTRACEPTION
     Dosage: CONTINUOUS
     Route: 015
     Dates: start: 20090302, end: 20090319
  2. THYROID TAB [Concomitant]
     Indication: HYPOTHYROIDISM
     Route: 048
     Dates: start: 20081101

REACTIONS (2)
  - PAIN [None]
  - UTERINE PERFORATION [None]
